FAERS Safety Report 6803782-4 (Version None)
Quarter: 2010Q2

REPORT INFORMATION
  Report Type: 
  Country: None (occurrence: None)
  Receive Date: 20100628
  Receipt Date: 20100617
  Transmission Date: 20101027
  Serious: Yes (Other)
  Sender: FDA-Public Use
  Company Number: US-JNJCH-2010014807

PATIENT
  Sex: Male
  Weight: 131.5 kg

DRUGS (2)
  1. BENADRYL [Suspect]
     Indication: SEASONAL ALLERGY
     Dosage: TEXT:TWO TABLETS AS RECOMMENDED
     Route: 048
     Dates: start: 20100510, end: 20100607
  2. OPIOIDS [Concomitant]
     Indication: BACK INJURY
     Dosage: TEXT:UNKNOWN
     Route: 065

REACTIONS (3)
  - DIARRHOEA [None]
  - PRODUCT QUALITY ISSUE [None]
  - WEIGHT DECREASED [None]
